FAERS Safety Report 16235850 (Version 2)
Quarter: 2019Q2

REPORT INFORMATION
  Report Type: Spontaneous
  Country: US (occurrence: US)
  Receive Date: 20190424
  Receipt Date: 20190521
  Transmission Date: 20190711
  Serious: No
  Sender: FDA-Public Use
  Company Number: US-ASTRAZENECA-2019SE51624

PATIENT
  Age: 27429 Day
  Sex: Female
  Weight: 89.8 kg

DRUGS (1)
  1. BYDUREON BCISE [Suspect]
     Active Substance: EXENATIDE
     Indication: TYPE 2 DIABETES MELLITUS
     Route: 058
     Dates: start: 2018

REACTIONS (5)
  - Wrong technique in device usage process [Recovered/Resolved]
  - Laryngitis [Recovering/Resolving]
  - Injection site pain [Recovering/Resolving]
  - Product dose omission [Unknown]
  - Device leakage [Unknown]

NARRATIVE: CASE EVENT DATE: 20190317
